FAERS Safety Report 10256579 (Version 1)
Quarter: 2014Q2

REPORT INFORMATION
  Report Type: Spontaneous
  Country: SE (occurrence: SE)
  Receive Date: 20140624
  Receipt Date: 20140624
  Transmission Date: 20141212
  Serious: Yes (Death)
  Sender: FDA-Public Use
  Company Number: PHHY2014SE073179

PATIENT
  Age: 71 Year
  Sex: 0

DRUGS (3)
  1. RIMSTAR [Suspect]
     Indication: TUBERCULOSIS
     Dosage: 5 DF, DAILY
     Route: 048
     Dates: start: 20140512
  2. PYRIDOXINE [Concomitant]
     Dates: start: 20140512
  3. METOPROLOL [Concomitant]

REACTIONS (1)
  - Multi-organ failure [Fatal]
